FAERS Safety Report 4706660-X (Version None)
Quarter: 2005Q2

REPORT INFORMATION
  Report Type: 
  Country: None (occurrence: None)
  Receive Date: 20050629
  Receipt Date: 20050328
  Transmission Date: 20051028
  Serious: No
  Sender: FDA-Public Use
  Company Number: 05P-163-0295336-00

PATIENT
  Age: 67 Year
  Sex: Male
  Weight: 100 kg

DRUGS (5)
  1. HUMIRA [Suspect]
     Indication: RHEUMATOID ARTHRITIS
     Dosage: 40 MG, 1 IN 2 WK, SUBCUTANEOUS
     Route: 058
     Dates: start: 20050302
  2. NAPROXEN [Concomitant]
  3. HYDROXYCHOROQUINE PHOSPHATE [Concomitant]
  4. UNKNOWN [Concomitant]
  5. RENADINE [Concomitant]

REACTIONS (4)
  - CHILLS [None]
  - DYSPNOEA [None]
  - NIGHT SWEATS [None]
  - RASH [None]
